FAERS Safety Report 7647692-1 (Version None)
Quarter: 2011Q3

REPORT INFORMATION
  Report Type: 
  Country: None (occurrence: None)
  Receive Date: 20110801
  Receipt Date: 20110801
  Transmission Date: 20111222
  Serious: Yes (Life-Threatening, Hospitalization)
  Sender: FDA-Public Use
  Company Number: None

PATIENT
  Sex: Female
  Weight: 131.54 kg

DRUGS (2)
  1. GAMMAGARD [Suspect]
     Indication: MYASTHENIA GRAVIS
     Dosage: 130 GR OVER 6-7 HRS FOR 2 DAYS
     Route: 042
     Dates: start: 20110628, end: 20110629
  2. GAMMAGARD [Concomitant]

REACTIONS (4)
  - ASTHENIA [None]
  - FALL [None]
  - PULMONARY EMBOLISM [None]
  - LOSS OF CONSCIOUSNESS [None]
